FAERS Safety Report 16042206 (Version 1)
Quarter: 2019Q1

REPORT INFORMATION
  Report Type: Spontaneous
  Country: US (occurrence: US)
  Receive Date: 20190306
  Receipt Date: 20190306
  Transmission Date: 20190418
  Serious: No
  Sender: FDA-Public Use
  Company Number: US-AKORN PHARMACEUTICALS-2018AKN00264

PATIENT
  Age: 15 Year
  Sex: Female
  Weight: 95.24 kg

DRUGS (5)
  1. MYORISAN [Suspect]
     Active Substance: ISOTRETINOIN
     Indication: ACNE
     Dosage: 20 MG, 2X/DAY
     Dates: start: 20170830, end: 20170928
  2. MYORISAN [Suspect]
     Active Substance: ISOTRETINOIN
     Dosage: 20 MG, EVERY 48 HOURS
     Dates: start: 20180205, end: 20180215
  3. UNSPECIFIED BIRTH CONTROL PILLS [Concomitant]
     Active Substance: UNSPECIFIED INGREDIENT
     Dosage: UNK
  4. MYORISAN [Suspect]
     Active Substance: ISOTRETINOIN
     Dosage: 20 MG, 1X/DAY
     Dates: start: 20171012, end: 20171204
  5. MYORISAN [Suspect]
     Active Substance: ISOTRETINOIN
     Dosage: 20 MG, 2X/DAY
     Dates: start: 20171204, end: 20180205

REACTIONS (1)
  - Blood triglycerides increased [Recovering/Resolving]

NARRATIVE: CASE EVENT DATE: 20170928
